FAERS Safety Report 8927919 (Version 1)
Quarter: 2012Q4

REPORT INFORMATION
  Report Type: Spontaneous
  Country: US (occurrence: None)
  Receive Date: 20121126
  Receipt Date: 20121126
  Transmission Date: 20130627
  Serious: Yes (Hospitalization)
  Sender: FDA-Public Use
  Company Number: None

PATIENT
  Age: 72 Year
  Sex: Male
  Weight: 91.6 kg

DRUGS (1)
  1. NAFCILLIN [Suspect]
     Indication: OSTEOMYELITIS
     Route: 042
     Dates: start: 20120430, end: 20120508

REACTIONS (2)
  - Renal failure acute [None]
  - Tubulointerstitial nephritis [None]
